FAERS Safety Report 5328865-X (Version None)
Quarter: 2007Q2

REPORT INFORMATION
  Report Type: 
  Country: None (occurrence: None)
  Receive Date: 20070518
  Receipt Date: 20070508
  Transmission Date: 20071010
  Serious: Yes (Other)
  Sender: FDA-Public Use
  Company Number: US-ASTRAZENECA-2006UW21085

PATIENT
  Age: 67 Year
  Sex: Male

DRUGS (3)
  1. CASODEX [Suspect]
     Indication: PROSTATE CANCER
     Route: 048
  2. ZOLADEX [Suspect]
     Indication: PROSTATE CANCER
     Route: 058
     Dates: start: 20070509
  3. KETOCONAZOLE [Concomitant]
     Indication: FUNGAL INFECTION

REACTIONS (2)
  - BONE DISORDER [None]
  - DISEASE PROGRESSION [None]
